FAERS Safety Report 9499871 (Version 1)
Quarter: 2013Q3

REPORT INFORMATION
  Report Type: Spontaneous
  Country: FR (occurrence: None)
  Receive Date: 20130903
  Receipt Date: 20130903
  Transmission Date: 20140515
  Serious: Yes (Hospitalization)
  Sender: FDA-Public Use
  Company Number: 2013P1018967

PATIENT
  Age: 35 Year
  Sex: Female

DRUGS (3)
  1. PLAQUENIL [Suspect]
     Route: 048
  2. AMOXICILLIN [Suspect]
     Indication: PYREXIA
     Dosage: 1 DOSE;X1;PO
     Dates: start: 20120529, end: 20120529
  3. AMOXICILLIN [Suspect]
     Indication: CHILLS
     Dosage: 1 DOSE;X1;PO
     Dates: start: 20120529, end: 20120529

REACTIONS (17)
  - Pyrexia [None]
  - Chills [None]
  - Headache [None]
  - Photophobia [None]
  - Malaise [None]
  - Nausea [None]
  - No therapeutic response [None]
  - Dermatitis exfoliative [None]
  - Arthralgia [None]
  - Protein urine present [None]
  - Lymphopenia [None]
  - Cell death [None]
  - Aspartate aminotransferase increased [None]
  - Toxic skin eruption [None]
  - Mucosal inflammation [None]
  - Skin test positive [None]
  - Inflammation [None]
